FAERS Safety Report 21442394 (Version 2)
Quarter: 2022Q4

REPORT INFORMATION
  Report Type: Spontaneous
  Country: AT (occurrence: AT)
  Receive Date: 20221011
  Receipt Date: 20221209
  Transmission Date: 20230113
  Serious: Yes (Hospitalization, Other)
  Sender: FDA-Public Use
  Company Number: AT-ROCHE-3110946

PATIENT
  Age: 60 Year
  Sex: Female

DRUGS (32)
  1. TUKYSA [Suspect]
     Active Substance: TUCATINIB
     Indication: HER2 positive breast cancer
     Dosage: 150 MG, BID
     Route: 042
     Dates: start: 20210528, end: 20211202
  2. CAPECITABINE [Suspect]
     Active Substance: CAPECITABINE
     Indication: HER2 positive breast cancer
     Dosage: 500 MG
     Route: 048
     Dates: start: 20200506, end: 20200719
  3. CAPECITABINE [Suspect]
     Active Substance: CAPECITABINE
     Dosage: FREQUENCY: OTHER MOST RECENT DOSE PRIOR TO THE EVENT: 19/AUG/2020
     Route: 048
     Dates: start: 20200323, end: 20200506
  4. CAPECITABINE [Suspect]
     Active Substance: CAPECITABINE
     Dosage: 500 MG, BID
     Route: 048
     Dates: start: 20200819, end: 20211202
  5. TRASTUZUMAB [Suspect]
     Active Substance: TRASTUZUMAB
     Indication: HER2 positive breast cancer
     Dosage: MOST RECENT DOSE PRIOR TO AE 02/DEC/2021
     Route: 042
     Dates: start: 20200323
  6. TRASTUZUMAB [Suspect]
     Active Substance: TRASTUZUMAB
     Indication: HER2 positive breast cancer
     Dosage: 600 MG, Q3WEEKS
     Route: 042
     Dates: start: 20200323, end: 20211202
  7. TRASTUZUMAB [Suspect]
     Active Substance: TRASTUZUMAB
     Dosage: 6 MG/KG, Q3WEEKS
     Route: 042
     Dates: start: 20171124, end: 20190426
  8. TRASTUZUMAB [Suspect]
     Active Substance: TRASTUZUMAB
     Dosage: FREQUENCY: OTHER MOST RECENT DOSE PRIOR TO THE EVENT: 23/MAR/2020
     Route: 042
     Dates: start: 20171103, end: 20171103
  9. FAM-TRASTUZUMAB DERUXTECAN-NXKI [Suspect]
     Active Substance: FAM-TRASTUZUMAB DERUXTECAN-NXKI
     Indication: HER2 positive breast cancer
     Dosage: 4.4 MG/KG, Q3WEEKS
     Route: 042
     Dates: start: 20220623
  10. FAM-TRASTUZUMAB DERUXTECAN-NXKI [Suspect]
     Active Substance: FAM-TRASTUZUMAB DERUXTECAN-NXKI
     Dosage: 5.4 MG/KG, Q3WEEKS
     Route: 042
     Dates: start: 20211230, end: 20220419
  11. ADO-TRASTUZUMAB EMTANSINE [Suspect]
     Active Substance: ADO-TRASTUZUMAB EMTANSINE
     Indication: HER2 positive breast cancer
     Dosage: 3.6 MG, Q3WEEKS
     Route: 042
     Dates: start: 20190531, end: 20191105
  12. ADO-TRASTUZUMAB EMTANSINE [Suspect]
     Active Substance: ADO-TRASTUZUMAB EMTANSINE
     Dosage: 3.2 MG, Q3WEEKS
     Route: 042
     Dates: start: 20191106, end: 20200323
  13. VINORELBINE [Suspect]
     Active Substance: VINORELBINE TARTRATE
     Indication: HER2 positive breast cancer
     Dosage: 120 MG, QWEEK
     Route: 048
     Dates: start: 20171124, end: 20180629
  14. VINORELBINE [Suspect]
     Active Substance: VINORELBINE TARTRATE
     Dosage: 100 MG, QWEEK
     Route: 048
     Dates: start: 20171103, end: 20171124
  15. PERTUZUMAB [Suspect]
     Active Substance: PERTUZUMAB
     Indication: HER2 positive breast cancer
     Dosage: FREQUENCY: OTHER MOST RECENT DOSE PRIOR TO THE EVENT: 24/NOV/2017
     Route: 042
     Dates: start: 20171103, end: 20171103
  16. PERTUZUMAB [Suspect]
     Active Substance: PERTUZUMAB
     Dosage: MOST RECENT DOSE PRIOR TO AE 26/APR/2019
     Route: 042
     Dates: start: 20171124
  17. ULCOSTAD [Concomitant]
     Dosage: ONGOING = CHECKED
     Route: 065
     Dates: start: 20201210
  18. METOCLOPRAMIDE HYDROCHLORIDE [Concomitant]
     Active Substance: METOCLOPRAMIDE HYDROCHLORIDE
     Dosage: ONGOING = CHECKED
     Route: 065
     Dates: start: 20200323
  19. HYDROMORPHONE HYDROCHLORIDE [Concomitant]
     Active Substance: HYDROMORPHONE HYDROCHLORIDE
     Dosage: ONGOING = CHECKED
     Route: 065
     Dates: start: 20200323
  20. ALPRAZOLAM [Concomitant]
     Active Substance: ALPRAZOLAM
     Dosage: ONGOING = CHECKED
     Route: 065
     Dates: start: 20220519
  21. DICLOFENAC SODIUM\ORPHENADRINE CITRATE [Concomitant]
     Active Substance: DICLOFENAC SODIUM\ORPHENADRINE CITRATE
     Route: 065
     Dates: start: 20200729
  22. LOPERAMIDE HYDROCHLORIDE [Concomitant]
     Active Substance: LOPERAMIDE HYDROCHLORIDE
     Indication: Diarrhoea
     Dosage: ONGOING = CHECKED
     Route: 065
     Dates: start: 20210528
  23. PREDNISOLONE [Concomitant]
     Active Substance: PREDNISOLONE
     Dosage: 35 MG, QD
     Route: 065
     Dates: start: 20220512
  24. NOVALGIN (METAMIZOLE SODIUM) [Concomitant]
     Active Substance: METAMIZOLE SODIUM
     Dosage: ONGOING = CHECKED
     Route: 065
     Dates: start: 20200323
  25. DEXAMETHASONE [Concomitant]
     Active Substance: DEXAMETHASONE
     Dosage: UNK
     Route: 065
     Dates: start: 20201210
  26. DEXAMETHASONE [Concomitant]
     Active Substance: DEXAMETHASONE
     Dosage: ONGOING = CHECKED
     Route: 065
     Dates: start: 20211029
  27. HYALURONATE SODIUM\TREHALOSE [Concomitant]
     Active Substance: HYALURONATE SODIUM\TREHALOSE
     Dosage: UNK
     Route: 065
     Dates: start: 20191024, end: 20191027
  28. DICLOFENAC SODIUM [Concomitant]
     Active Substance: DICLOFENAC SODIUM
  29. POLYETHYLENE GLYCOL 3350\POTASSIUM CHLORIDE\SODIUM BICARBONATE\SODIUM [Concomitant]
     Active Substance: POLYETHYLENE GLYCOL 3350\POTASSIUM CHLORIDE\SODIUM BICARBONATE\SODIUM CHLORIDE
     Dosage: ONGOING = CHECKED
     Route: 065
     Dates: start: 20200323
  30. BETAMETHASONE [Concomitant]
     Active Substance: BETAMETHASONE
     Dosage: UNK
     Dates: start: 20191024, end: 20191127
  31. BETAMETHASONE [Concomitant]
     Active Substance: BETAMETHASONE
     Dosage: UNK
     Dates: start: 20191027, end: 20191127
  32. FILGRASTIM [Concomitant]
     Active Substance: FILGRASTIM
     Dosage: ONGOING = CHECKED
     Dates: start: 20200527

REACTIONS (2)
  - Tachycardia [Recovered/Resolved]
  - Pneumonitis [Recovered/Resolved]

NARRATIVE: CASE EVENT DATE: 20220512
